FAERS Safety Report 9630167 (Version 2)
Quarter: 2013Q4

REPORT INFORMATION
  Report Type: Report from Study
  Country: EC (occurrence: EC)
  Receive Date: 20131017
  Receipt Date: 20131106
  Transmission Date: 20140711
  Serious: Yes (Other)
  Sender: FDA-Public Use
  Company Number: PHHY2013EC116712

PATIENT
  Age: 78 Year
  Sex: Male

DRUGS (3)
  1. DIOVAN [Suspect]
     Indication: HYPERTENSION
     Dosage: 320 MG, QD
     Route: 048
     Dates: start: 2011, end: 201209
  2. DIOVAN [Suspect]
     Dosage: 320 MG, QD
     Route: 048
     Dates: start: 20130404
  3. LOSARTAN [Suspect]
     Dosage: UNK UKN, UNK
     Dates: start: 201209, end: 20130404

REACTIONS (3)
  - Road traffic accident [Unknown]
  - Tibia fracture [Recovering/Resolving]
  - Gait disturbance [Unknown]
